FAERS Safety Report 18257518 (Version 2)
Quarter: 2020Q4

REPORT INFORMATION
  Report Type: Spontaneous
  Country: US (occurrence: US)
  Receive Date: 20200911
  Receipt Date: 20201016
  Transmission Date: 20210113
  Serious: No
  Sender: FDA-Public Use
  Company Number: US-GLAXOSMITHKLINE-US2020AMR179744

PATIENT

DRUGS (1)
  1. NICODERM CQ [Suspect]
     Active Substance: NICOTINE
     Indication: SMOKING CESSATION THERAPY
     Dosage: 1 DF, QD
     Dates: start: 202008

REACTIONS (4)
  - Product complaint [Unknown]
  - Nightmare [Unknown]
  - Abnormal dreams [Unknown]
  - Feeling jittery [Unknown]

NARRATIVE: CASE EVENT DATE: 20200902
